FAERS Safety Report 21458899 (Version 1)
Quarter: 2022Q4

REPORT INFORMATION
  Report Type: Spontaneous
  Country: SG (occurrence: SG)
  Receive Date: 20221014
  Receipt Date: 20221014
  Transmission Date: 20230113
  Serious: Yes (Other)
  Sender: FDA-Public Use
  Company Number: SG-SLATE RUN PHARMACEUTICALS-22SG001367

PATIENT

DRUGS (5)
  1. GANCICLOVIR [Suspect]
     Active Substance: GANCICLOVIR
     Indication: Cytomegalovirus chorioretinitis
     Dosage: UNK UNK, 1/WEEK
  2. GANCICLOVIR [Suspect]
     Active Substance: GANCICLOVIR
     Dosage: 10 MILLIGRAM/0.2 ML, SINGLE TO THE LEFT EYE
     Dates: start: 20221213, end: 20221213
  3. GANCICLOVIR [Suspect]
     Active Substance: GANCICLOVIR
     Dosage: 2 MILLIGRAM/0.04ML, 2/WEEK
     Dates: start: 20211209, end: 20211209
  4. FOSCARNET [Concomitant]
     Active Substance: FOSCARNET
     Indication: Cytomegalovirus viraemia
     Dosage: UNK, QD
     Route: 042
     Dates: start: 202112
  5. FOSCARNET [Concomitant]
     Active Substance: FOSCARNET
     Indication: Cytomegalovirus chorioretinitis
     Dosage: UNK
     Route: 042
     Dates: start: 2021, end: 2021

REACTIONS (9)
  - Corneal deposits [Recovered/Resolved]
  - Intraocular pressure increased [Recovering/Resolving]
  - Overdose [Recovered/Resolved]
  - Toxicity to various agents [Unknown]
  - Pupillary reflex impaired [Unknown]
  - Retinal oedema [Unknown]
  - Subretinal fluid [Recovered/Resolved]
  - Off label use [Unknown]
  - Visual impairment [Recovering/Resolving]

NARRATIVE: CASE EVENT DATE: 20211209
